FAERS Safety Report 8182613-7 (Version None)
Quarter: 2012Q1

REPORT INFORMATION
  Report Type: 
  Country: None (occurrence: None)
  Receive Date: 20120305
  Receipt Date: 20120224
  Transmission Date: 20120608
  Serious: Yes (Hospitalization)
  Sender: FDA-Public Use
  Company Number: US-BAYER-201039204NA

PATIENT
  Age: 29 Year
  Sex: Female
  Weight: 97.506 kg

DRUGS (6)
  1. AMOXICILLIN [Concomitant]
     Dosage: 500 MG, UNK
     Route: 048
  2. DROSPIRENONE AND ETHINYL ESTRADIOL [Suspect]
     Dosage: UNK
     Dates: start: 20090801
  3. DROSPIRENONE AND ETHINYL ESTRADIOL [Suspect]
     Dosage: UNK
     Dates: start: 20100201
  4. TRILEPTAL [Concomitant]
     Indication: MENTAL DISORDER
     Dosage: 1200 MG, UNK
     Route: 048
     Dates: start: 20070101
  5. SEROQUEL [Concomitant]
     Indication: MENTAL DISORDER
     Dosage: UNK
     Dates: start: 20070101
  6. FLUCONAZOLE [Concomitant]
     Dosage: 150 MG, QD
     Route: 048

REACTIONS (2)
  - PULMONARY EMBOLISM [None]
  - CHEST DISCOMFORT [None]
